FAERS Safety Report 7470612-X (Version None)
Quarter: 2011Q2

REPORT INFORMATION
  Report Type: 
  Country: None (occurrence: None)
  Receive Date: 20110510
  Receipt Date: 20110504
  Transmission Date: 20111010
  Serious: Yes (Death)
  Sender: FDA-Public Use
  Company Number: ES-ROCHE-714317

PATIENT

DRUGS (1)
  1. ACTEMRA [Suspect]
     Route: 065

REACTIONS (1)
  - DEATH [None]
